FAERS Safety Report 7259699-7 (Version None)
Quarter: 2011Q1

REPORT INFORMATION
  Report Type: 
  Country: None (occurrence: None)
  Receive Date: 20110130
  Receipt Date: 20100910
  Transmission Date: 20110831
  Serious: No
  Sender: FDA-Public Use
  Company Number: US-ABBOTT-10P-163-0652355-00

PATIENT
  Sex: Female
  Weight: 16.344 kg

DRUGS (7)
  1. MULTI-VITAMIN [Concomitant]
     Indication: PRODUCT USED FOR UNKNOWN INDICATION
     Route: 048
  2. PROBIOTIC [Concomitant]
     Indication: PRODUCT USED FOR UNKNOWN INDICATION
     Route: 048
  3. CYCLOPENTOLATE HCL [Concomitant]
     Indication: UVEITIS
     Dosage: STARTED AT TWICE DAILY, AND DECREASED WEEKLY
     Route: 047
  4. LOVAZA [Concomitant]
     Indication: PRODUCT USED FOR UNKNOWN INDICATION
     Route: 048
  5. HUMIRA [Suspect]
     Indication: PSORIATIC ARTHROPATHY
     Route: 058
     Dates: start: 20090601
  6. FLUORIDE VITAMIN [Concomitant]
     Indication: PRODUCT USED FOR UNKNOWN INDICATION
     Route: 048
  7. PREDNISOLONE [Concomitant]
     Indication: UVEITIS
     Dosage: STARTED AT 4 TIMES DAILY, AND DECREASED WEEKLY
     Route: 047

REACTIONS (3)
  - PAIN IN EXTREMITY [None]
  - DRUG INEFFECTIVE [None]
  - PHARYNGITIS STREPTOCOCCAL [None]
